FAERS Safety Report 4987241-X (Version None)
Quarter: 2006Q2

REPORT INFORMATION
  Report Type: 
  Country: None (occurrence: None)
  Receive Date: 20060501
  Receipt Date: 20051228
  Transmission Date: 20061013
  Serious: Yes (Hospitalization, Other)
  Sender: FDA-Public Use
  Company Number: US-MERCK-0512USA04032

PATIENT
  Age: 75 Year
  Sex: Female
  Weight: 48 kg

DRUGS (17)
  1. VIOXX [Suspect]
     Indication: OSTEOARTHRITIS
     Route: 048
     Dates: start: 20020301, end: 20041001
  2. VIOXX [Suspect]
     Indication: RHEUMATOID ARTHRITIS
     Route: 048
     Dates: start: 20020301, end: 20041001
  3. PROPAFENONE HYDROCHLORIDE [Concomitant]
     Route: 065
  4. NIFEDIPINE [Concomitant]
     Route: 065
  5. TOPROL-XL [Concomitant]
     Indication: HYPERTENSION
     Route: 065
  6. TOPROL-XL [Concomitant]
     Indication: CORONARY ARTERY DISEASE
     Route: 065
  7. HYDROXYCHLOROQUINE SULFATE [Concomitant]
     Route: 065
  8. TRAMADOL HYDROCHLORIDE [Concomitant]
     Route: 065
  9. COUMADIN [Concomitant]
     Indication: CEREBROVASCULAR ACCIDENT
     Route: 065
  10. COUMADIN [Concomitant]
     Indication: ATRIAL FIBRILLATION
     Route: 065
  11. [THERAPY UNSPECIFIED] [Concomitant]
     Route: 065
  12. RYTHMOL [Concomitant]
     Indication: ATRIAL FIBRILLATION
     Route: 065
  13. LIPITOR [Concomitant]
     Indication: HYPERCHOLESTEROLAEMIA
     Route: 065
  14. ULTRACET [Concomitant]
     Route: 065
  15. PREDNISONE [Concomitant]
     Route: 065
  16. POTASSIUM (UNSPECIFIED) [Concomitant]
     Route: 065
  17. LISINOPRIL [Concomitant]
     Route: 065

REACTIONS (18)
  - ACUTE MYOCARDIAL INFARCTION [None]
  - ANGINA UNSTABLE [None]
  - ARRHYTHMIA SUPRAVENTRICULAR [None]
  - ARTHRALGIA [None]
  - CARDIAC DISORDER [None]
  - CARDIOMEGALY [None]
  - CEREBROVASCULAR ACCIDENT [None]
  - CHEST PAIN [None]
  - CONTUSION [None]
  - DECREASED APPETITE [None]
  - FALL [None]
  - FEMORAL ARTERY OCCLUSION [None]
  - HERPES ZOSTER [None]
  - INTERMITTENT CLAUDICATION [None]
  - JOINT INJURY [None]
  - MYOCARDIAL ISCHAEMIA [None]
  - POST PROCEDURAL NAUSEA [None]
  - RASH [None]
